FAERS Safety Report 9882151 (Version 4)
Quarter: 2014Q2

REPORT INFORMATION
  Report Type: Spontaneous
  Country: US (occurrence: US)
  Receive Date: 20140207
  Receipt Date: 20140410
  Transmission Date: 20141212
  Serious: Yes (Other)
  Sender: FDA-Public Use
  Company Number: US-JNJFOC-20140119491

PATIENT
  Sex: Male

DRUGS (1)
  1. RISPERDAL [Suspect]
     Indication: AUTISM SPECTRUM DISORDER
     Route: 065

REACTIONS (9)
  - Tardive dyskinesia [Unknown]
  - Gynaecomastia [Unknown]
  - Aphasia [Unknown]
  - Dystonia [Unknown]
  - Weight increased [Unknown]
  - Dysmorphism [Unknown]
  - Emotional distress [Unknown]
  - Increased appetite [Unknown]
  - Somnolence [Unknown]
